FAERS Safety Report 6415841-9 (Version None)
Quarter: 2009Q4

REPORT INFORMATION
  Report Type: 
  Country: None (occurrence: None)
  Receive Date: 20091023
  Receipt Date: 20091009
  Transmission Date: 20100525
  Serious: Yes (Hospitalization)
  Sender: FDA-Public Use
  Company Number: ALA_00371_2009

PATIENT
  Age: 83 Year
  Sex: Male

DRUGS (1)
  1. POLYETHYLENE GLYCOL 3350 [Suspect]
     Indication: COLONOSCOPY
     Dosage: (ORAL)
     Route: 048

REACTIONS (3)
  - CHONDROCALCINOSIS PYROPHOSPHATE [None]
  - FLANK PAIN [None]
  - PYREXIA [None]
